FAERS Safety Report 5511797-1 (Version None)
Quarter: 2007Q4

REPORT INFORMATION
  Report Type: 
  Country: None (occurrence: None)
  Receive Date: 20071109
  Receipt Date: 20071029
  Transmission Date: 20080405
  Serious: Yes (Other)
  Sender: FDA-Public Use
  Company Number: US-PFIZER INC-2007090889

PATIENT
  Sex: Male

DRUGS (11)
  1. XANAX [Suspect]
     Indication: INSOMNIA
     Dosage: FREQ:AS NEEDED
  2. XANAX [Suspect]
     Indication: ANXIETY
  3. WARFARIN SODIUM [Suspect]
     Indication: PROPHYLAXIS
     Route: 048
  4. VICODIN [Suspect]
     Indication: ARTHRALGIA
     Dosage: FREQ:AS NEEDED
     Route: 048
  5. VICODIN [Suspect]
     Indication: ARTHRITIS
  6. LUNESTA [Concomitant]
     Indication: INSOMNIA
     Route: 048
  7. PEPCID [Concomitant]
     Indication: DIVERTICULITIS
     Route: 048
  8. ALTACE [Concomitant]
     Indication: CARDIAC FAILURE CONGESTIVE
     Route: 048
  9. ALTACE [Concomitant]
     Indication: PULMONARY HYPERTENSION
  10. PRAVACHOL [Concomitant]
     Indication: HYPERLIPIDAEMIA
     Route: 048
  11. SPIRIVA [Concomitant]
     Indication: CHRONIC OBSTRUCTIVE PULMONARY DISEASE
     Dosage: DAILY DOSE:18MCG
     Route: 055
     Dates: start: 20070301

REACTIONS (1)
  - BALANCE DISORDER [None]
